FAERS Safety Report 7525663-3 (Version None)
Quarter: 2011Q2

REPORT INFORMATION
  Report Type: 
  Country: None (occurrence: None)
  Receive Date: 20110606
  Receipt Date: 20110524
  Transmission Date: 20111010
  Serious: Yes (Hospitalization, Other)
  Sender: FDA-Public Use
  Company Number: PHHY2011BR05641

PATIENT
  Age: 82 Year
  Sex: Female

DRUGS (1)
  1. DIOVAN HCT [Suspect]
     Dosage: 320 MG VALS AND 12.5 MG HYDR
     Route: 048

REACTIONS (11)
  - PAIN IN EXTREMITY [None]
  - BACK PAIN [None]
  - HYPERTENSION [None]
  - ARRHYTHMIA [None]
  - DECREASED APPETITE [None]
  - INFARCTION [None]
  - HYPERHIDROSIS [None]
  - COUGH [None]
  - FATIGUE [None]
  - CHEST PAIN [None]
  - INSOMNIA [None]
